FAERS Safety Report 7292316-9 (Version None)
Quarter: 2011Q1

REPORT INFORMATION
  Report Type: 
  Country: None (occurrence: None)
  Receive Date: 20110215
  Receipt Date: 20110203
  Transmission Date: 20110831
  Serious: Yes (Other)
  Sender: FDA-Public Use
  Company Number: US-BAYER-2011-012107

PATIENT
  Sex: Female

DRUGS (1)
  1. MIRENA [Suspect]
     Dosage: CONTINUOUSLY
     Route: 015
     Dates: start: 20090923

REACTIONS (2)
  - OVARIAN CYST [None]
  - ABDOMINAL PAIN [None]
